FAERS Safety Report 5465039-6 (Version None)
Quarter: 2007Q3

REPORT INFORMATION
  Report Type: 
  Country: None (occurrence: None)
  Receive Date: 20070820
  Receipt Date: 20070426
  Transmission Date: 20080115
  Serious: No
  Sender: FDA-Public Use
  Company Number: TPA2007A00917

PATIENT
  Age: 6 Decade
  Sex: Male

DRUGS (2)
  1. ROZEREM [Suspect]
     Indication: SLEEP DISORDER
     Dosage: 8 MG, HS, PER ORAL
     Route: 048
  2. UNKNOWN ANTIPSYCHOTICS (ANTIPSYCHOTICS) [Concomitant]

REACTIONS (1)
  - HYPERSOMNIA [None]
